FAERS Safety Report 9480469 (Version 1)
Quarter: 2013Q3

REPORT INFORMATION
  Report Type: Spontaneous
  Country: US (occurrence: US)
  Receive Date: 20130828
  Receipt Date: 20130828
  Transmission Date: 20140515
  Serious: Yes (Other)
  Sender: FDA-Public Use
  Company Number: US-AMGEN-KDL122831

PATIENT
  Age: 40 Year
  Sex: Male

DRUGS (2)
  1. ENBREL [Suspect]
     Indication: PSORIASIS
     Dosage: 25 MG, 2 TIMES/WK
     Route: 058
     Dates: start: 20040401, end: 20041126
  2. ENBREL [Suspect]
     Dosage: 50 MG, 2 TIMES/WK
     Route: 058

REACTIONS (7)
  - Hypersensitivity [Recovered/Resolved]
  - Oedema peripheral [Recovered/Resolved]
  - Rash erythematous [Recovered/Resolved]
  - Arthralgia [Unknown]
  - Joint crepitation [Unknown]
  - Psoriasis [Unknown]
  - Condition aggravated [Unknown]
